FAERS Safety Report 11363075 (Version 1)
Quarter: 2015Q3

REPORT INFORMATION
  Report Type: Spontaneous
  Country: DE (occurrence: None)
  Receive Date: 20150807
  Receipt Date: 20150807
  Transmission Date: 20151125
  Serious: Yes (Life-Threatening, Hospitalization)
  Sender: FDA-Public Use
  Company Number: DE-AGG-07-2015-0607

PATIENT
  Age: 76 Year
  Sex: Female
  Weight: 50 kg

DRUGS (3)
  1. TIROFIBAN HCI [Suspect]
     Active Substance: TIROFIBAN HYDROCHLORIDE
     Indication: ANTIPLATELET THERAPY
     Dosage: 1 X 4.5 ML EVEY 1 DAY(S) INTRAVENOUS
     Route: 042
     Dates: start: 20070508, end: 20070508
  2. THYROID MEDICATION [Concomitant]
     Active Substance: UNSPECIFIED INGREDIENT
  3. TIROFIBAN HCI [Suspect]
     Active Substance: TIROFIBAN HYDROCHLORIDE
     Indication: ANTIPLATELET THERAPY
     Dosage: 1 X 8 ML EVERY 1 HOUR(S) INTRAVENOUS
     Route: 042
     Dates: start: 20070508

REACTIONS (2)
  - Tricuspid valve incompetence [None]
  - Mitral valve incompetence [None]

NARRATIVE: CASE EVENT DATE: 20070622
